FAERS Safety Report 6773374-4 (Version None)
Quarter: 2010Q2

REPORT INFORMATION
  Report Type: 
  Country: None (occurrence: None)
  Receive Date: 20100614
  Receipt Date: 20100602
  Transmission Date: 20101027
  Serious: Yes (Death, Hospitalization, Other)
  Sender: FDA-Public Use
  Company Number: 2009AC00048

PATIENT
  Age: 80 Year
  Sex: Male
  Weight: 68.0396 kg

DRUGS (25)
  1. DIGOXIN [Suspect]
     Dosage: 0.125 MG;QD; PO
     Route: 048
     Dates: start: 20030801, end: 20070201
  2. FUROSEMIDE [Concomitant]
  3. LORAZEPAM [Concomitant]
  4. ISOSORBIDE [Concomitant]
  5. ZETIA [Concomitant]
  6. SPIRONOLACTONE [Concomitant]
  7. COREG [Concomitant]
  8. ASPIRIN [Concomitant]
  9. LOVASTATIN [Concomitant]
  10. ROCALTROL [Concomitant]
  11. TYLENOL [Concomitant]
  12. NITROGLYCERIN [Concomitant]
  13. VICODIN [Concomitant]
  14. ROBITUSSIN [Concomitant]
  15. DULCOLAX [Concomitant]
  16. PROVENTIL [Concomitant]
  17. AMBIEN [Concomitant]
  18. ADVAIR DISKUS 100/50 [Concomitant]
  19. APRESOLINE [Concomitant]
  20. PROTONIX [Concomitant]
  21. SENOKOT [Concomitant]
  22. COUMADIN [Concomitant]
  23. COLCHICINE [Concomitant]
  24. VANCOMYCIN [Concomitant]
  25. OXYGEN [Concomitant]

REACTIONS (29)
  - ACUTE MYOCARDIAL INFARCTION [None]
  - ANTIBIOTIC RESISTANT STAPHYLOCOCCUS TEST POSITIVE [None]
  - CARDIAC FAILURE CONGESTIVE [None]
  - CHEST PAIN [None]
  - CHRONIC OBSTRUCTIVE PULMONARY DISEASE [None]
  - CONGESTIVE CARDIOMYOPATHY [None]
  - CORONARY ARTERY DISEASE [None]
  - CORONARY ARTERY OCCLUSION [None]
  - DEEP VEIN THROMBOSIS [None]
  - DILATATION VENTRICULAR [None]
  - DIZZINESS [None]
  - DYSPNOEA EXERTIONAL [None]
  - ECONOMIC PROBLEM [None]
  - EJECTION FRACTION DECREASED [None]
  - FATIGUE [None]
  - GOUT [None]
  - HEPATIC CONGESTION [None]
  - HEPATIC ENZYME INCREASED [None]
  - HYPOTENSION [None]
  - ISCHAEMIC CARDIOMYOPATHY [None]
  - LEFT VENTRICULAR DYSFUNCTION [None]
  - LOBAR PNEUMONIA [None]
  - MULTIPLE INJURIES [None]
  - PNEUMONIA [None]
  - RENAL FAILURE [None]
  - SPINAL OSTEOARTHRITIS [None]
  - UNRESPONSIVE TO STIMULI [None]
  - VENTRICULAR TACHYCARDIA [None]
  - VERTEBROBASILAR INSUFFICIENCY [None]
